FAERS Safety Report 18353611 (Version 1)
Quarter: 2020Q4

REPORT INFORMATION
  Report Type: Spontaneous
  Country: US (occurrence: US)
  Receive Date: 20201006
  Receipt Date: 20201006
  Transmission Date: 20210114
  Serious: No
  Sender: FDA-Public Use
  Company Number: US-ROCHE-2445553

PATIENT
  Sex: Male

DRUGS (8)
  1. MILK THISTLE [Concomitant]
     Active Substance: DIETARY SUPPLEMENT\HERBALS\MILK THISTLE
  2. VITAMIN D3 [Concomitant]
     Active Substance: CHOLECALCIFEROL
  3. OXYCODONE [Concomitant]
     Active Substance: OXYCODONE
  4. VESICARE [Concomitant]
     Active Substance: SOLIFENACIN SUCCINATE
  5. ZELBORAF [Suspect]
     Active Substance: VEMURAFENIB
     Indication: COLON CANCER
     Route: 048
     Dates: start: 20191014
  6. ERIVEDGE [Suspect]
     Active Substance: VISMODEGIB
     Indication: PRODUCT USED FOR UNKNOWN INDICATION
     Route: 065
  7. PROTONIX [Concomitant]
     Active Substance: PANTOPRAZOLE SODIUM
  8. POTASSIUM [Concomitant]
     Active Substance: POTASSIUM

REACTIONS (6)
  - Weight decreased [Unknown]
  - Fatigue [Unknown]
  - Body height decreased [Unknown]
  - Off label use [Unknown]
  - Decreased appetite [Unknown]
  - Product use in unapproved indication [Unknown]
